FAERS Safety Report 21772978 (Version 2)
Quarter: 2023Q1

REPORT INFORMATION
  Report Type: Spontaneous
  Country: FR (occurrence: FR)
  Receive Date: 20221223
  Receipt Date: 20230105
  Transmission Date: 20230418
  Serious: No
  Sender: FDA-Public Use
  Company Number: FR-ORGANON-O2212FRA001189

PATIENT
  Sex: Female

DRUGS (2)
  1. SINEMET [Suspect]
     Active Substance: CARBIDOPA\LEVODOPA
     Indication: Parkinsonism
     Dosage: 4 INTAKES (8:00 A.M, 12:00 P.M, 4:00 P.M AND 8:00 P.M)
     Route: 048
     Dates: start: 202206
  2. SINEMET [Suspect]
     Active Substance: CARBIDOPA\LEVODOPA
     Dosage: REDUCED THE SEQUENCE TO 3 DOSES WITH HIGHER DOSES
     Route: 048
     Dates: start: 2022

REACTIONS (1)
  - Mastication disorder [Recovering/Resolving]

NARRATIVE: CASE EVENT DATE: 20220101
